FAERS Safety Report 18765214 (Version 4)
Quarter: 2021Q2

REPORT INFORMATION
  Report Type: Report from Study
  Country: US (occurrence: US)
  Receive Date: 20210120
  Receipt Date: 20210518
  Transmission Date: 20210717
  Serious: Yes (Hospitalization)
  Sender: FDA-Public Use
  Company Number: US-SEATTLE GENETICS-2021SGN00176

PATIENT
  Sex: Female

DRUGS (1)
  1. TUCATINIB [Suspect]
     Active Substance: TUCATINIB
     Indication: BREAST CANCER FEMALE
     Dosage: UNK

REACTIONS (5)
  - Abdominal pain upper [Recovering/Resolving]
  - COVID-19 [Unknown]
  - Radiotherapy [Unknown]
  - Confusional state [Unknown]
  - Ulcer [Recovering/Resolving]
